FAERS Safety Report 18647220 (Version 2)
Quarter: 2020Q4

REPORT INFORMATION
  Report Type: Spontaneous
  Country: US (occurrence: US)
  Receive Date: 20201222
  Receipt Date: 20201231
  Transmission Date: 20210114
  Serious: Yes (Death, Hospitalization, Other)
  Sender: FDA-Public Use
  Company Number: US-UROGEN PHARMA LTD.-2020-UGN-000033

PATIENT
  Age: 74 Year
  Sex: Male

DRUGS (6)
  1. JELMYTO [Suspect]
     Active Substance: MITOMYCIN
     Dosage: 4 MG/ML
     Dates: start: 20200803, end: 20200803
  2. JELMYTO [Suspect]
     Active Substance: MITOMYCIN
     Dosage: UNK (INSTILATION)
     Dates: start: 20200817, end: 20200817
  3. JELMYTO [Suspect]
     Active Substance: MITOMYCIN
     Dosage: UNK (INSTILATION)
     Dates: start: 20200824, end: 20200824
  4. JELMYTO [Suspect]
     Active Substance: MITOMYCIN
     Indication: TRANSITIONAL CELL CANCER OF THE RENAL PELVIS AND URETER RECURRENT
     Dosage: 60 MILLIGRAM
     Dates: start: 20200727, end: 20200727
  5. JELMYTO [Suspect]
     Active Substance: MITOMYCIN
     Dosage: UNK (INSTILATION)
     Dates: start: 20200810, end: 20200810
  6. JELMYTO [Suspect]
     Active Substance: MITOMYCIN
     Dosage: UNK (INSTILATION)
     Dates: start: 20200831, end: 20200831

REACTIONS (13)
  - Renal cyst [Unknown]
  - Pancytopenia [Recovering/Resolving]
  - Pulmonary toxicity [Unknown]
  - Weight decreased [Not Recovered/Not Resolved]
  - Death [Fatal]
  - Lung infiltration [Not Recovered/Not Resolved]
  - Hydronephrosis [Unknown]
  - Pneumonia [Unknown]
  - Bladder neoplasm [Recovered/Resolved]
  - Decreased appetite [Not Recovered/Not Resolved]
  - Oxygen saturation decreased [Not Recovered/Not Resolved]
  - Immunosuppression [Unknown]
  - Flank pain [Unknown]

NARRATIVE: CASE EVENT DATE: 202008
